FAERS Safety Report 19275234 (Version 2)
Quarter: 2022Q2

REPORT INFORMATION
  Report Type: Spontaneous
  Country: US (occurrence: US)
  Receive Date: 20210519
  Receipt Date: 20220430
  Transmission Date: 20220721
  Serious: Yes (Hospitalization)
  Sender: FDA-Public Use
  Company Number: US-TEVA-2020-US-1853206

PATIENT
  Age: 52 Year
  Sex: Female

DRUGS (3)
  1. TREPROSTINIL [Suspect]
     Active Substance: TREPROSTINIL
     Indication: Pulmonary arterial hypertension
     Dosage: DOSE: 28NG/KG/MIN
     Route: 042
     Dates: start: 20191008
  2. TREPROSTINIL [Suspect]
     Active Substance: TREPROSTINIL
     Dosage: DOSE: 34.5NG/KG/MIN
     Route: 042
     Dates: start: 201910
  3. TREPROSTINIL [Suspect]
     Active Substance: TREPROSTINIL
     Dosage: DOSE: 47NG/KG/MIN
     Route: 042
     Dates: start: 20191030

REACTIONS (6)
  - Gastroenteritis viral [Unknown]
  - Gastritis [Unknown]
  - Hospitalisation [Unknown]
  - Malaise [Unknown]
  - Adverse event [Unknown]
  - Feeling abnormal [Unknown]

NARRATIVE: CASE EVENT DATE: 20201119
